FAERS Safety Report 8081943-7 (Version None)
Quarter: 2012Q1

REPORT INFORMATION
  Report Type: 
  Country: None (occurrence: None)
  Receive Date: 20120130
  Receipt Date: 20110705
  Transmission Date: 20120608
  Serious: No
  Sender: FDA-Public Use
  Company Number: US-ABBOTT-11P-163-0837263-00

PATIENT
  Sex: Male
  Weight: 79.45 kg

DRUGS (4)
  1. LUPRON DEPOT [Suspect]
     Indication: PROSTATE CANCER
     Dates: start: 20110629
  2. GLUCOPHAGE [Concomitant]
     Indication: DIABETES MELLITUS
  3. UNKNOWN BLOOD PRESSURE MEDICATION [Concomitant]
     Indication: PRODUCT USED FOR UNKNOWN INDICATION
  4. ALLOPURINOL [Concomitant]
     Indication: GOUT

REACTIONS (2)
  - PRURITUS GENERALISED [None]
  - RASH GENERALISED [None]
